FAERS Safety Report 6534232-3 (Version None)
Quarter: 2010Q1

REPORT INFORMATION
  Report Type: 
  Country: None (occurrence: None)
  Receive Date: 20100112
  Receipt Date: 20100106
  Transmission Date: 20100710
  Serious: Yes (Other)
  Sender: FDA-Public Use
  Company Number: PHHY2009CA52562

PATIENT
  Sex: Female

DRUGS (3)
  1. DIOVAN [Suspect]
     Dosage: 1 TABLET (160 MG) /DAY
     Route: 048
  2. CELEDRIN [Concomitant]
     Indication: PAIN
  3. CELEDRIN [Concomitant]
     Indication: INFLAMMATION

REACTIONS (8)
  - BLOOD PRESSURE FLUCTUATION [None]
  - BLOOD PRESSURE INCREASED [None]
  - COUGH [None]
  - DIZZINESS [None]
  - INFLAMMATION [None]
  - MALAISE [None]
  - OSTEOARTHRITIS [None]
  - PAIN [None]
